FAERS Safety Report 4294542-X (Version None)
Quarter: 2004Q1

REPORT INFORMATION
  Report Type: 
  Country: None (occurrence: None)
  Receive Date: 20040213
  Receipt Date: 20040126
  Transmission Date: 20041129
  Serious: Yes (Hospitalization)
  Sender: FDA-Public Use
  Company Number: PHBS2004GR01388

PATIENT
  Age: 39 Year
  Sex: Male

DRUGS (2)
  1. SALAGEN [Suspect]
     Indication: XEROPHTHALMIA
     Dosage: UNK, TID
     Route: 048
  2. FML [Concomitant]

REACTIONS (2)
  - BRAIN TUMOUR OPERATION [None]
  - GLIOMA [None]
